FAERS Safety Report 24014035 (Version 1)
Quarter: 2024Q2

REPORT INFORMATION
  Report Type: Spontaneous
  Country: US (occurrence: US)
  Receive Date: 20240626
  Receipt Date: 20240626
  Transmission Date: 20240716
  Serious: Yes (Other)
  Sender: FDA-Public Use
  Company Number: US-MLMSERVICE-20240613-PI099784-00306-1

PATIENT
  Age: 74 Year
  Sex: Male

DRUGS (1)
  1. TACROLIMUS [Suspect]
     Active Substance: TACROLIMUS
     Indication: Immunosuppression
     Dosage: UNK

REACTIONS (3)
  - Pericardial cyst [Recovered/Resolved]
  - Cardiac dysfunction [Recovered/Resolved]
  - Haemodynamic instability [Recovered/Resolved]
